FAERS Safety Report 4536903-7 (Version None)
Quarter: 2004Q4

REPORT INFORMATION
  Report Type: 
  Country: None (occurrence: None)
  Receive Date: 20041220
  Receipt Date: 20041210
  Transmission Date: 20050328
  Serious: Yes (Other)
  Sender: FDA-Public Use
  Company Number: US-2004-036466

PATIENT
  Sex: Female

DRUGS (1)
  1. YASMIN [Suspect]
     Indication: ACNE
     Dosage: 1 TAB(S), 1X/DAY, ORAL
     Route: 048

REACTIONS (2)
  - MYOPIA [None]
  - PAPILLOEDEMA [None]
